FAERS Safety Report 9102280 (Version 2)
Quarter: 2013Q1

REPORT INFORMATION
  Report Type: Report from Study
  Country: FR (occurrence: FR)
  Receive Date: 20130218
  Receipt Date: 20130221
  Transmission Date: 20140127
  Serious: Yes (Hospitalization)
  Sender: FDA-Public Use
  Company Number: FR-ROCHE-1191678

PATIENT
  Age: 45 Year
  Sex: Female

DRUGS (17)
  1. TOCILIZUMAB [Suspect]
     Indication: RHEUMATOID ARTHRITIS
     Route: 065
     Dates: start: 20110208
  2. TOCILIZUMAB [Suspect]
     Route: 065
     Dates: start: 20110308
  3. TOCILIZUMAB [Suspect]
     Route: 065
     Dates: start: 20110405
  4. TOCILIZUMAB [Suspect]
     Route: 065
     Dates: start: 20110519
  5. TOCILIZUMAB [Suspect]
     Route: 065
     Dates: start: 20110906
  6. TOCILIZUMAB [Suspect]
     Route: 065
     Dates: start: 20111004
  7. TOCILIZUMAB [Suspect]
     Route: 065
     Dates: start: 20120117
  8. TOCILIZUMAB [Suspect]
     Route: 065
     Dates: start: 20120217
  9. LEVOTHYROX [Concomitant]
     Route: 065
  10. LEVOTHYROX [Concomitant]
     Route: 065
  11. SOLU-MEDROL [Concomitant]
  12. ARAVA [Concomitant]
     Route: 065
  13. METHOTREXATE [Concomitant]
     Route: 065
  14. ADALIMUMAB [Concomitant]
  15. LIPANTHYL [Concomitant]
     Route: 065
  16. OMEPRAZOLE [Concomitant]
  17. IXPRIM [Concomitant]
     Route: 065

REACTIONS (4)
  - Ligament sprain [Recovered/Resolved]
  - Tooth abscess [Recovered/Resolved]
  - Cough [Unknown]
  - Ear infection [Recovered/Resolved]
